FAERS Safety Report 9132232 (Version 2)
Quarter: 2013Q2

REPORT INFORMATION
  Report Type: Spontaneous
  Country: US (occurrence: US)
  Receive Date: 20130301
  Receipt Date: 20130426
  Transmission Date: 20140414
  Serious: No
  Sender: FDA-Public Use
  Company Number: US-PFIZER INC-2013073855

PATIENT
  Age: 85 Year
  Sex: Female
  Weight: 68 kg

DRUGS (6)
  1. XANAX [Suspect]
     Indication: SLEEP DISORDER
     Dosage: 0.5 MG, UNK
  2. XANAX [Suspect]
     Indication: NERVOUSNESS
     Dosage: 0.25 MG, UNK
  3. XANAX [Suspect]
     Dosage: 0.5 MG, UNK
  4. XANAX [Suspect]
     Dosage: 0.25 MG, 2X/DAY
     Dates: start: 20130227
  5. COZAAR [Concomitant]
     Indication: HYPERTENSION
     Dosage: 35 MG, DAILY
  6. PLAVIX [Concomitant]
     Indication: CARDIAC DISORDER
     Dosage: 75 MG, DAILY

REACTIONS (7)
  - Drug ineffective [Unknown]
  - Malaise [Not Recovered/Not Resolved]
  - Nausea [Not Recovered/Not Resolved]
  - Walking aid user [Not Recovered/Not Resolved]
  - Balance disorder [Not Recovered/Not Resolved]
  - Pain [Not Recovered/Not Resolved]
  - Fall [Unknown]
